FAERS Safety Report 16332606 (Version 1)
Quarter: 2019Q2

REPORT INFORMATION
  Report Type: Spontaneous
  Country: US (occurrence: US)
  Receive Date: 20190520
  Receipt Date: 20190520
  Transmission Date: 20190711
  Serious: Yes (Hospitalization)
  Sender: FDA-Public Use
  Company Number: US-PFIZER INC-2019203547

PATIENT
  Age: 75 Year
  Sex: Female
  Weight: 64.86 kg

DRUGS (2)
  1. LYRICA [Suspect]
     Active Substance: PREGABALIN
     Indication: MYASTHENIA GRAVIS
     Dosage: 75 MG, 2X/DAY AS NEEDED
     Route: 048
  2. MESTINON [Concomitant]
     Active Substance: PYRIDOSTIGMINE BROMIDE
     Dosage: UNK

REACTIONS (4)
  - Myasthenia gravis [Unknown]
  - Drug ineffective for unapproved indication [Unknown]
  - Off label use [Unknown]
  - Disease recurrence [Unknown]
